FAERS Safety Report 20649983 (Version 1)
Quarter: 2022Q1

REPORT INFORMATION
  Report Type: Spontaneous
  Country: US (occurrence: None)
  Receive Date: 20220329
  Receipt Date: 20220329
  Transmission Date: 20220423
  Serious: No
  Sender: FDA-Public Use
  Company Number: None

PATIENT
  Age: 72 Year
  Sex: Male
  Weight: 87.09 kg

DRUGS (8)
  1. TEMOZOLOMIDE [Suspect]
     Active Substance: TEMOZOLOMIDE
     Indication: Brain neoplasm malignant
     Dosage: 280MG  FOR 5 DAYS ORAL?
     Route: 048
     Dates: start: 202107
  2. NIFEDINPINE [Concomitant]
  3. LEPPRA [Concomitant]
  4. LOSARTAN [Concomitant]
     Active Substance: LOSARTAN
  5. VITAMINS [Concomitant]
     Active Substance: VITAMINS
  6. VITAMIN C [Concomitant]
     Active Substance: ASCORBIC ACID
  7. HYDREA [Concomitant]
     Active Substance: HYDROXYUREA
  8. MEGESTROL [Concomitant]
     Active Substance: MEGESTROL

REACTIONS (1)
  - Hospitalisation [None]

NARRATIVE: CASE EVENT DATE: 20220327
